FAERS Safety Report 8255805-6 (Version None)
Quarter: 2012Q2

REPORT INFORMATION
  Report Type: 
  Country: None (occurrence: None)
  Receive Date: 20120403
  Receipt Date: 20120328
  Transmission Date: 20120825
  Serious: Yes (Other)
  Sender: FDA-Public Use
  Company Number: GR-ROCHE-1004273

PATIENT
  Age: 47 Year

DRUGS (4)
  1. AVASTIN [Suspect]
     Indication: ADENOCARCINOMA
     Route: 042
  2. CISPLATIN [Concomitant]
     Indication: ADENOCARCINOMA
     Dosage: 75/M2
  3. ALIMTA [Concomitant]
     Indication: ADENOCARCINOMA
     Dosage: 500/M2
  4. AVASTIN [Suspect]

REACTIONS (2)
  - DISEASE PROGRESSION [None]
  - CHOLECYSTITIS ACUTE [None]
